FAERS Safety Report 20009825 (Version 1)
Quarter: 2021Q4

REPORT INFORMATION
  Report Type: Spontaneous
  Country: US (occurrence: US)
  Receive Date: 20211029
  Receipt Date: 20211029
  Transmission Date: 20220304
  Serious: No
  Sender: FDA-Public Use
  Company Number: US-DRREDDYS-SPO/USA/21/0142931

PATIENT
  Age: 24 Year
  Sex: Female
  Weight: 65.25 kg

DRUGS (2)
  1. SUMATRIPTAN [Suspect]
     Active Substance: SUMATRIPTAN
     Indication: Migraine
     Dosage: 6 MG/0.5 ML, 1 PEN WHEN NEEDED
     Dates: start: 2019
  2. SUMATRIPTAN [Suspect]
     Active Substance: SUMATRIPTAN
     Dosage: 6 MG/0.5 ML, 1 PEN WHEN NEEDED

REACTIONS (3)
  - Underdose [Unknown]
  - Drug ineffective [Unknown]
  - Product quality issue [Unknown]
